FAERS Safety Report 12988316 (Version 1)
Quarter: 2016Q4

REPORT INFORMATION
  Report Type: Spontaneous
  Country: US (occurrence: US)
  Receive Date: 20161130
  Receipt Date: 20161130
  Transmission Date: 20170207
  Serious: Yes (Hospitalization, Other)
  Sender: FDA-Public Use
  Company Number: US-ELI_LILLY_AND_COMPANY-US201607009123

PATIENT
  Age: 35 Year
  Sex: Male
  Weight: 82 kg

DRUGS (5)
  1. CYMBALTA [Suspect]
     Active Substance: DULOXETINE HYDROCHLORIDE
     Indication: DEPRESSION
     Dosage: 30 MG, QD
     Route: 048
     Dates: start: 20100602
  2. HUMIRA [Concomitant]
     Active Substance: ADALIMUMAB
     Indication: PRODUCT USED FOR UNKNOWN INDICATION
     Dosage: 40 MG,EVERY 2 WEEKS
     Route: 058
  3. HYDROCHLOROTHIAZIDE. [Concomitant]
     Active Substance: HYDROCHLOROTHIAZIDE
     Indication: HYPERTENSION
     Dosage: 25 MG, QD
     Route: 048
  4. LOSARTAN POTASSIUM. [Concomitant]
     Active Substance: LOSARTAN POTASSIUM
     Indication: HYPERTENSION
     Dosage: 100 MG, QD
     Route: 048
  5. CYMBALTA [Suspect]
     Active Substance: DULOXETINE HYDROCHLORIDE
     Dosage: 60 MG, QD
     Route: 048
     Dates: start: 20100709, end: 20120220

REACTIONS (17)
  - Fatigue [Unknown]
  - Irritability [Unknown]
  - Insomnia [Unknown]
  - Sensory disturbance [Unknown]
  - Affect lability [Unknown]
  - Hyperhidrosis [Unknown]
  - Dizziness [Unknown]
  - Confusional state [Unknown]
  - Drug withdrawal syndrome [Unknown]
  - Suicidal ideation [Recovered/Resolved]
  - Headache [Unknown]
  - Depression [Unknown]
  - Dysphoria [Unknown]
  - Paraesthesia [Unknown]
  - Suicide attempt [Recovered/Resolved]
  - Agitation [Unknown]
  - Anxiety [Unknown]

NARRATIVE: CASE EVENT DATE: 20120302
